FAERS Safety Report 16840075 (Version 1)
Quarter: 2019Q3

REPORT INFORMATION
  Report Type: Spontaneous
  Country: US (occurrence: US)
  Receive Date: 20190923
  Receipt Date: 20190923
  Transmission Date: 20191005
  Serious: Yes (Hospitalization)
  Sender: FDA-Public Use
  Company Number: US-BAYER-2019-170020

PATIENT
  Sex: Female

DRUGS (1)
  1. ADEMPAS [Suspect]
     Active Substance: RIOCIGUAT
     Dosage: TOOK WHOLE BOTTLE OF MEDICATION
     Dates: start: 20190914

REACTIONS (1)
  - Product use issue [None]

NARRATIVE: CASE EVENT DATE: 20190914
